FAERS Safety Report 8541205-8 (Version None)
Quarter: 2012Q3

REPORT INFORMATION
  Report Type: 
  Country: None (occurrence: None)
  Receive Date: 20120726
  Receipt Date: 20120716
  Transmission Date: 20120928
  Serious: Yes (Other)
  Sender: FDA-Public Use
  Company Number: US-JNJFOC-20120707967

PATIENT
  Age: 61 Year
  Sex: Female
  Weight: 63.5 kg

DRUGS (2)
  1. TUCKS MEDICATED PADS [Suspect]
     Indication: HAEMORRHOIDS
     Route: 061
  2. UNKNOWN MEDICATION [Concomitant]
     Route: 065

REACTIONS (3)
  - SWELLING [None]
  - RECTAL HAEMORRHAGE [None]
  - THROMBOSIS [None]
